FAERS Safety Report 17956892 (Version 1)
Quarter: 2020Q2

REPORT INFORMATION
  Report Type: Spontaneous
  Country: US (occurrence: US)
  Receive Date: 20200629
  Receipt Date: 20200629
  Transmission Date: 20200714
  Serious: Yes (Other)
  Sender: FDA-Public Use
  Company Number: None

PATIENT
  Sex: Male
  Weight: 91.35 kg

DRUGS (4)
  1. ATORVASTATIN [Concomitant]
     Active Substance: ATORVASTATIN
  2. LISINOPRIL. [Concomitant]
     Active Substance: LISINOPRIL
  3. SULFAMETHOXAZOLE AND TRIMETHOPRIM [Suspect]
     Active Substance: SULFAMETHOXAZOLE\TRIMETHOPRIM
     Indication: INFECTION
     Dosage: ?          QUANTITY:2 TABLET(S);?
  4. POTASSIUM [Concomitant]
     Active Substance: POTASSIUM

REACTIONS (9)
  - Dysphagia [None]
  - Productive cough [None]
  - Penile burning sensation [None]
  - Dyspepsia [None]
  - Dysphonia [None]
  - Dyspnoea [None]
  - Pain in extremity [None]
  - Decreased appetite [None]
  - Headache [None]
